FAERS Safety Report 7954269-7 (Version None)
Quarter: 2011Q4

REPORT INFORMATION
  Report Type: 
  Country: None (occurrence: None)
  Receive Date: 20111202
  Receipt Date: 20111123
  Transmission Date: 20120403
  Serious: Yes (Other)
  Sender: FDA-Public Use
  Company Number: BE-ASTRAZENECA-2011SE70960

PATIENT
  Age: 80 Year
  Sex: Male

DRUGS (3)
  1. TEVETEN [Suspect]
     Indication: HYPERTENSION
     Route: 065
  2. ATACAND [Suspect]
     Route: 048
  3. TEVETEN [Suspect]
     Indication: CARDIAC FAILURE
     Route: 065

REACTIONS (1)
  - BRADYCARDIA [None]
